FAERS Safety Report 14009688 (Version 1)
Quarter: 2017Q3

REPORT INFORMATION
  Report Type: Spontaneous
  Country: CN (occurrence: CN)
  Receive Date: 20170925
  Receipt Date: 20170925
  Transmission Date: 20171128
  Serious: Yes (Death, Hospitalization, Other)
  Sender: FDA-Public Use
  Company Number: CN-EAGLE PHARMACEUTICALS, INC.-CN-2017EAG000126

PATIENT
  Age: 46 Year
  Sex: Male

DRUGS (4)
  1. DOCETAXEL. [Suspect]
     Active Substance: DOCETAXEL
     Indication: OESOPHAGEAL SQUAMOUS CELL CARCINOMA METASTATIC
     Dosage: 120 MG,DAY 1, CYCLE 1
  2. NEDAPLATIN [Suspect]
     Active Substance: NEDAPLATIN
     Indication: OESOPHAGEAL SQUAMOUS CELL CARCINOMA METASTATIC
     Dosage: 40 MG, DAYS 1-3 CYCLE 1
  3. DOCETAXEL. [Suspect]
     Active Substance: DOCETAXEL
     Dosage: 120 MG,DAY 1, CYCLE 2
  4. NEDAPLATIN [Suspect]
     Active Substance: NEDAPLATIN
     Dosage: 40 MG, DAYS 1-3 CYCLE 2

REACTIONS (6)
  - Hepatic failure [Not Recovered/Not Resolved]
  - Multiple organ dysfunction syndrome [Fatal]
  - Disseminated intravascular coagulation [Not Recovered/Not Resolved]
  - Anaemia [Recovered/Resolved]
  - Aorto-oesophageal fistula [Not Recovered/Not Resolved]
  - Acute kidney injury [Not Recovered/Not Resolved]
